FAERS Safety Report 11232125 (Version 2)
Quarter: 2015Q4

REPORT INFORMATION
  Report Type: Spontaneous
  Country: NL (occurrence: NL)
  Receive Date: 20150701
  Receipt Date: 20151027
  Transmission Date: 20160304
  Serious: Yes (Death)
  Sender: FDA-Public Use
  Company Number: NL-TOLMAR, INC.-2015NL005768

PATIENT
  Age: 72 Year
  Sex: Male

DRUGS (16)
  1. FENTANYL. [Concomitant]
     Active Substance: FENTANYL
     Route: 065
  2. AMITRIPTYLINE [Concomitant]
     Active Substance: AMITRIPTYLINE
     Route: 065
  3. ELIGARD [Suspect]
     Active Substance: LEUPROLIDE ACETATE
     Dosage: 45 MG, ONCE EVERY 6 MONTH
     Route: 058
     Dates: start: 20141113
  4. X-PRAEP                            /00571901/ [Concomitant]
     Dosage: UNK
     Route: 065
  5. ZOPICLON [Concomitant]
     Active Substance: ZOPICLONE
     Route: 065
  6. ELIGARD [Suspect]
     Active Substance: LEUPROLIDE ACETATE
     Indication: PROSTATE CANCER
     Dosage: 45 MG, ONCE EVERY 6 MONTH
     Route: 058
     Dates: start: 20140213
  7. ELIGARD [Suspect]
     Active Substance: LEUPROLIDE ACETATE
     Dosage: 45 MG, ONCE EVERY 6 MONTH
     Route: 058
     Dates: start: 20150519
  8. SALBUTAMOL [Concomitant]
     Active Substance: ALBUTEROL
     Route: 065
  9. XGEVA [Concomitant]
     Active Substance: DENOSUMAB
     Route: 065
  10. CALCICHEW [Concomitant]
     Active Substance: CALCIUM CARBONATE
     Route: 065
  11. ABSTRAL [Concomitant]
     Active Substance: FENTANYL CITRATE
     Route: 065
  12. OMEPRAZOLE. [Concomitant]
     Active Substance: OMEPRAZOLE
     Route: 065
  13. FLUTAMIDE. [Concomitant]
     Active Substance: FLUTAMIDE
     Route: 065
  14. DICLOFENAC [Concomitant]
     Active Substance: DICLOFENAC
     Route: 065
  15. PARACETAMOL [Concomitant]
     Active Substance: ACETAMINOPHEN
     Route: 065
  16. CYPROTERONE [Concomitant]
     Active Substance: CYPROTERONE
     Route: 065

REACTIONS (1)
  - Prostate cancer [Fatal]

NARRATIVE: CASE EVENT DATE: 20150616
